FAERS Safety Report 4650039-6 (Version None)
Quarter: 2005Q2

REPORT INFORMATION
  Report Type: 
  Country: None (occurrence: None)
  Receive Date: 20050502
  Receipt Date: 20050425
  Transmission Date: 20051028
  Serious: Yes (Other)
  Sender: FDA-Public Use
  Company Number: CH-ROCHE-402971

PATIENT
  Age: 25 Year
  Sex: Male

DRUGS (2)
  1. PEGASYS [Suspect]
     Indication: HEPATITIS C
     Route: 065
     Dates: start: 20040324
  2. COPEGUS [Suspect]
     Indication: HEPATITIS C
     Route: 065
     Dates: start: 20040324

REACTIONS (4)
  - ANXIETY [None]
  - MURDER [None]
  - SOCIAL PHOBIA [None]
  - SUICIDE ATTEMPT [None]
